FAERS Safety Report 4386076-9 (Version None)
Quarter: 2004Q2

REPORT INFORMATION
  Report Type: 
  Country: None (occurrence: None)
  Receive Date: 20040610
  Receipt Date: 20040503
  Transmission Date: 20050107
  Serious: Yes (Hospitalization)
  Sender: FDA-Public Use
  Company Number: US-JNJFOC-20040501609

PATIENT
  Age: 52 Year
  Sex: Female
  Weight: 148.3262 kg

DRUGS (1)
  1. NATRECOR [Suspect]
     Indication: DRUG USE FOR UNKNOWN INDICATION
     Dosage: INTRAVENOUS
     Route: 042

REACTIONS (3)
  - COLD SWEAT [None]
  - DIZZINESS [None]
  - NAUSEA [None]
